FAERS Safety Report 9385736 (Version 1)
Quarter: 2013Q3

REPORT INFORMATION
  Report Type: Spontaneous
  Country: FR (occurrence: FR)
  Receive Date: 20130705
  Receipt Date: 20130705
  Transmission Date: 20140515
  Serious: Yes (Hospitalization)
  Sender: FDA-Public Use
  Company Number: FR-BRISTOL-MYERS SQUIBB COMPANY-19064112

PATIENT
  Age: 63 Year
  Sex: Male

DRUGS (2)
  1. AZACTAM POWDER [Suspect]
     Indication: INFECTION
     Dosage: 1 DF: 500MG/L INFUSION
     Route: 042
     Dates: start: 20130106, end: 20130106
  2. METRONIDAZOLE [Suspect]
     Indication: INFECTION
     Dosage: 1 DF: 500MG/L INFUSION
     Route: 042
     Dates: start: 20130106, end: 20130106

REACTIONS (5)
  - Renal failure [Not Recovered/Not Resolved]
  - Rash [Recovered/Resolved]
  - Face oedema [Recovered/Resolved]
  - Palatal oedema [Recovered/Resolved]
  - Hepatic enzyme increased [Recovered/Resolved]
